FAERS Safety Report 11248922 (Version 3)
Quarter: 2015Q3

REPORT INFORMATION
  Report Type: Spontaneous
  Country: US (occurrence: None)
  Receive Date: 20150630
  Receipt Date: 20150810
  Transmission Date: 20151125
  Serious: Yes (Life-Threatening, Hospitalization, Other)
  Sender: FDA-Public Use
  Company Number: 003-277

PATIENT
  Age: 68 Year
  Sex: Male

DRUGS (1)
  1. CROFAB [Suspect]
     Active Substance: CROTALIDAE POLYVALENT IMMUNE FAB (OVINE)
     Indication: SNAKE BITE
     Dosage: 4 VIALS TOTAL
     Dates: start: 20150512

REACTIONS (6)
  - Hypoxia [None]
  - Urticaria [None]
  - Product quality issue [None]
  - Lip swelling [None]
  - Hypersensitivity [None]
  - House dust allergy [None]

NARRATIVE: CASE EVENT DATE: 20150512
